FAERS Safety Report 18152599 (Version 7)
Quarter: 2022Q2

REPORT INFORMATION
  Report Type: Report from Study
  Country: CN (occurrence: None)
  Receive Date: 20200814
  Receipt Date: 20220603
  Transmission Date: 20220721
  Serious: Yes (Death, Hospitalization)
  Sender: FDA-Public Use
  Company Number: CN-EISAI MEDICAL RESEARCH-EC-2020-075994

PATIENT
  Age: 60 Year
  Sex: Male
  Weight: 72 kg

DRUGS (6)
  1. LENVATINIB [Suspect]
     Active Substance: LENVATINIB
     Indication: Hepatocellular carcinoma
     Dosage: STARTING DOSE AT 12 MG DAILY, FLUCTUATED FREQUENCY
     Route: 048
     Dates: start: 20200210, end: 20200601
  2. LENVATINIB [Suspect]
     Active Substance: LENVATINIB
     Route: 048
     Dates: start: 20200609, end: 20200609
  3. PLACEBO [Suspect]
     Active Substance: UNSPECIFIED INGREDIENT
     Indication: Hepatocellular carcinoma
     Route: 041
     Dates: start: 20200210, end: 20200508
  4. PLACEBO [Suspect]
     Active Substance: UNSPECIFIED INGREDIENT
     Route: 041
     Dates: start: 20200609, end: 20200609
  5. ENTECAVIR [Concomitant]
     Active Substance: ENTECAVIR
     Dates: start: 20080420, end: 20200609
  6. BICYCLOL [Concomitant]
     Active Substance: BICYCLOL
     Dates: start: 20191224, end: 20200609

REACTIONS (1)
  - Gastrointestinal haemorrhage [Fatal]

NARRATIVE: CASE EVENT DATE: 20200609
